FAERS Safety Report 8311934-X (Version None)
Quarter: 2012Q2

REPORT INFORMATION
  Report Type: 
  Country: None (occurrence: None)
  Receive Date: 20120425
  Receipt Date: 20120417
  Transmission Date: 20120825
  Serious: Yes (Hospitalization)
  Sender: FDA-Public Use
  Company Number: DK-B.I. PHARMACEUTICALS,INC./RIDGEFIELD-2011-SW-00537DB

PATIENT
  Sex: Female
  Weight: 70 kg

DRUGS (4)
  1. METFORMIN ^ACTAVIS^ [Concomitant]
     Indication: DIABETES MELLITUS
     Dates: start: 20100101
  2. FUROSEMIDE [Concomitant]
     Indication: HYPERTENSION
     Dosage: 60 MG
     Route: 048
     Dates: start: 20100101
  3. PRADAXA [Suspect]
     Indication: DEEP VEIN THROMBOSIS
     Dosage: 220 MG
     Route: 048
     Dates: start: 20110101, end: 20110101
  4. SIMVASTATIN [Concomitant]
     Indication: HYPERCHOLESTEROLAEMIA
     Dosage: 40 MG
     Route: 048
     Dates: start: 20100101

REACTIONS (5)
  - RENAL DISORDER [None]
  - HAEMATEMESIS [None]
  - UPPER GASTROINTESTINAL HAEMORRHAGE [None]
  - MELAENA [None]
  - DEHYDRATION [None]
